FAERS Safety Report 8914240 (Version 1)
Quarter: 2012Q4

REPORT INFORMATION
  Report Type: 
  Country: US (occurrence: US)
  Receive Date: 20121116
  Receipt Date: 20121116
  Transmission Date: 20130627
  Serious: Yes (Hospitalization)
  Sender: FDA-Public Use
  Company Number: US-US-EMD SERONO, INC.-7173298

PATIENT
  Age: 67 Year
  Sex: Female

DRUGS (1)
  1. REBIF [Suspect]
     Indication: SECONDARY PROGRESSIVE MULTIPLE SCLEROSIS
     Route: 058
     Dates: start: 20021021, end: 20121019

REACTIONS (7)
  - Muscle spasticity [Recovered/Resolved]
  - Flushing [Recovered/Resolved]
  - Muscular weakness [Recovered/Resolved]
  - Hypokinesia [Recovered/Resolved]
  - Erythema [Recovered/Resolved]
  - Musculoskeletal discomfort [Unknown]
  - Multiple sclerosis relapse [Recovering/Resolving]
